FAERS Safety Report 16251448 (Version 1)
Quarter: 2019Q2

REPORT INFORMATION
  Report Type: Spontaneous
  Country: US (occurrence: US)
  Receive Date: 20190426
  Receipt Date: 20190426
  Transmission Date: 20190711
  Serious: Yes (Other)
  Sender: FDA-Public Use
  Company Number: None

PATIENT

DRUGS (1)
  1. TISSEEL FIBRIN SEALANT [Suspect]
     Active Substance: FIBRINOGEN HUMAN\THROMBIN HUMAN
     Indication: COAGULOPATHY
     Dosage: ?          OTHER FREQUENCY:ONCE;?
     Route: 061
     Dates: start: 20190426, end: 20190426

REACTIONS (1)
  - Product use issue [None]

NARRATIVE: CASE EVENT DATE: 20190426
